FAERS Safety Report 19052973 (Version 1)
Quarter: 2021Q1

REPORT INFORMATION
  Report Type: Spontaneous
  Country: US (occurrence: US)
  Receive Date: 20210324
  Receipt Date: 20210324
  Transmission Date: 20210420
  Serious: Yes (Hospitalization)
  Sender: FDA-Public Use
  Company Number: US-MYLANLABS-2021M1016024

PATIENT
  Age: 31 Year
  Sex: Female

DRUGS (5)
  1. THIOCTIC ACID [Suspect]
     Active Substance: .ALPHA.-LIPOIC ACID
     Indication: WEIGHT DECREASED
     Dosage: UNK
  2. ASCORBIC ACID MYLAN [Suspect]
     Active Substance: ASCORBIC ACID
     Indication: WEIGHT DECREASED
     Dosage: UNK, INFUSION
  3. VITAMIN B COMPLEX [Suspect]
     Active Substance: CYANOCOBALAMIN\DEXPANTHENOL\NIACINAMIDE\PYRIDOXINE HYDROCHLORIDE\RIBOFLAVIN 5^-PHOSPHATE SODIUM\THIAMINE HYDROCHLORIDE\VITAMIN B COMPLEX
     Indication: WEIGHT DECREASED
     Dosage: UNK
  4. MAGNESIUM SULFATE. [Suspect]
     Active Substance: MAGNESIUM SULFATE
     Indication: WEIGHT DECREASED
     Dosage: UNK, INFUSION
  5. GLUTATHIONE [Suspect]
     Active Substance: GLUTATHIONE
     Indication: WEIGHT DECREASED
     Dosage: UNK

REACTIONS (4)
  - Disseminated intravascular coagulation [Recovering/Resolving]
  - Diarrhoea [Recovering/Resolving]
  - Headache [Recovering/Resolving]
  - Abdominal pain [Recovering/Resolving]
